FAERS Safety Report 4938631-2 (Version None)
Quarter: 2006Q1

REPORT INFORMATION
  Report Type: 
  Country: None (occurrence: None)
  Receive Date: 20060306
  Receipt Date: 20060221
  Transmission Date: 20060701
  Serious: Yes (Death)
  Sender: FDA-Public Use
  Company Number: US_0510123174

PATIENT
  Age: 19 Year
  Sex: Female
  Weight: 53.5 kg

DRUGS (4)
  1. STRATTERA [Suspect]
     Dosage: ORAL
     Route: 048
  2. EFFEXOR [Concomitant]
  3. GEODON [Concomitant]
  4. CLONAZEPAM [Concomitant]

REACTIONS (8)
  - CARDIAC ARREST [None]
  - COMPLETED SUICIDE [None]
  - DRUG TOXICITY [None]
  - MULTIPLE DRUG OVERDOSE INTENTIONAL [None]
  - PULMONARY CONGESTION [None]
  - RESPIRATION ABNORMAL [None]
  - RESPIRATORY ARREST [None]
  - SOMNOLENCE [None]
